FAERS Safety Report 9799258 (Version 2)
Quarter: 2014Q1

REPORT INFORMATION
  Report Type: Spontaneous
  Country: US (occurrence: US)
  Receive Date: 20140106
  Receipt Date: 20140106
  Transmission Date: 20141002
  Serious: Yes (Disabling)
  Sender: FDA-Public Use
  Company Number: US-GILEAD-2010-0033870

PATIENT
  Age: 49 Year
  Sex: Female

DRUGS (1)
  1. LETAIRIS [Suspect]
     Indication: PULMONARY ARTERIAL HYPERTENSION
     Route: 048
     Dates: start: 20100914, end: 20101120

REACTIONS (7)
  - Headache [Recovered/Resolved]
  - Angina pectoris [Recovered/Resolved]
  - Dizziness [Recovered/Resolved]
  - Hot flush [Recovered/Resolved]
  - Dyspnoea [Recovered/Resolved]
  - Constipation [Recovered/Resolved]
  - Nasal congestion [Recovered/Resolved]
